FAERS Safety Report 6240345-6 (Version None)
Quarter: 2009Q2

REPORT INFORMATION
  Report Type: 
  Country: None (occurrence: None)
  Receive Date: 20090623
  Receipt Date: 20080814
  Transmission Date: 20091009
  Serious: No
  Sender: FDA-Public Use
  Company Number: US-ASTRAZENECA-2008UW16176

PATIENT
  Age: 71 Year
  Sex: Female

DRUGS (6)
  1. PULMICORT RESPULES [Suspect]
     Indication: EMPHYSEMA
     Route: 055
     Dates: start: 20030101
  2. AMLODIPINE [Concomitant]
  3. LEVOXYL [Concomitant]
  4. PRIMIDONE [Concomitant]
  5. VITAMINS NOS [Concomitant]
  6. XOPENEX [Concomitant]

REACTIONS (4)
  - CATARACT [None]
  - MACULAR DEGENERATION [None]
  - TREMOR [None]
  - VISUAL ACUITY REDUCED [None]
